FAERS Safety Report 7251521-8 (Version None)
Quarter: 2011Q1

REPORT INFORMATION
  Report Type: 
  Country: None (occurrence: None)
  Receive Date: 20110128
  Receipt Date: 20110114
  Transmission Date: 20110831
  Serious: Yes (Other)
  Sender: FDA-Public Use
  Company Number: US-ELI_LILLY_AND_COMPANY-US201101003833

PATIENT
  Sex: Male

DRUGS (14)
  1. FORTEO [Suspect]
     Indication: OSTEOPOROSIS
     Dosage: 20 UG, DAILY (1/D)
  2. ASPIRIN [Concomitant]
     Dosage: 81 MG, DAILY (1/D)
  3. FOSAMAX [Concomitant]
     Dosage: ONCE A WEEK
  4. VITAMIN D [Concomitant]
     Dosage: 1000 UNITS DAILY
  5. COUMADIN [Concomitant]
     Dosage: 5 MG, DAILY (1/D)
  6. IMURAN [Concomitant]
     Dosage: 50 MG, DAILY (1/D)
  7. TERAZOSIN HCL [Concomitant]
     Dosage: 5 MG, UNK
  8. MULTI-VITAMIN [Concomitant]
     Dosage: ONCE DAILY
  9. GAVISCON                                /GFR/ [Concomitant]
     Dosage: 500 MG, DAILY (1/D)
  10. ACETYLCYSTEINE [Concomitant]
     Dosage: 600 MG, DAILY (1/D)
  11. VYTORIN [Concomitant]
     Dosage: 10/80MG DAILY
  12. FISH OIL [Concomitant]
     Dosage: 1000 MG, DAILY (1/D)
  13. PERSANTINE [Concomitant]
     Dosage: 50 MG, 2/D
  14. ASCORBIC ACID [Concomitant]
     Dosage: 1000 MG, DAILY (1/D)

REACTIONS (2)
  - PULMONARY FIBROSIS [None]
  - HYPERCALCAEMIA [None]
